FAERS Safety Report 6882536-7 (Version None)
Quarter: 2010Q3

REPORT INFORMATION
  Report Type: 
  Country: None (occurrence: None)
  Receive Date: 20100729
  Receipt Date: 20100720
  Transmission Date: 20110219
  Serious: Yes (Hospitalization)
  Sender: FDA-Public Use
  Company Number: JP-JNJFOC-20100603951

PATIENT
  Sex: Male

DRUGS (16)
  1. RISPERDAL CONSTA [Suspect]
     Indication: SCHIZOPHRENIA
     Route: 030
  2. RISPERDAL [Suspect]
     Indication: SCHIZOPHRENIA
     Route: 048
  3. RISPERDAL [Suspect]
     Route: 048
  4. RISPERDAL [Suspect]
     Route: 048
  5. SERENACE [Suspect]
     Indication: SCHIZOPHRENIA
     Route: 048
  6. ZYPREXA [Concomitant]
     Indication: SCHIZOPHRENIA
     Route: 048
  7. NEULEPTIL [Concomitant]
     Indication: SCHIZOPHRENIA
     Route: 048
  8. VEGETAMIN-A [Concomitant]
     Indication: SCHIZOPHRENIA
     Route: 048
  9. TEGRETOL [Concomitant]
     Indication: SCHIZOPHRENIA
     Route: 048
  10. CLONAZEPAM [Concomitant]
     Indication: SCHIZOPHRENIA
     Route: 048
  11. ROHYPNOL [Concomitant]
     Indication: SCHIZOPHRENIA
     Route: 048
  12. BENZALIN [Concomitant]
     Indication: SCHIZOPHRENIA
     Route: 048
  13. PURSENNID [Concomitant]
     Indication: CONSTIPATION
     Route: 048
  14. LAXOBERON [Concomitant]
     Indication: CONSTIPATION
     Route: 048
  15. MAGNESIUM OXIDE [Concomitant]
     Indication: CONSTIPATION
     Route: 048
  16. PANTOSIN [Concomitant]
     Indication: CONSTIPATION
     Route: 048

REACTIONS (1)
  - ILEUS PARALYTIC [None]
